FAERS Safety Report 7736955-7 (Version None)
Quarter: 2011Q3

REPORT INFORMATION
  Report Type: 
  Country: None (occurrence: None)
  Receive Date: 20110908
  Receipt Date: 20110828
  Transmission Date: 20111222
  Serious: Yes (Death, Other)
  Sender: FDA-Public Use
  Company Number: EG-ROCHE-797020

PATIENT
  Age: 54 Year
  Sex: Male

DRUGS (3)
  1. GEMCITABINE [Concomitant]
     Dosage: ON D1 AND D8
     Dates: start: 20110525, end: 20110713
  2. CISPLATIN [Concomitant]
     Dosage: ON DAY 1.
     Dates: start: 20110525, end: 20110713
  3. AVASTIN [Suspect]
     Route: 042
     Dates: start: 20110525, end: 20110713

REACTIONS (2)
  - HALLUCINATION, VISUAL [None]
  - CEREBRAL HAEMORRHAGE [None]
